FAERS Safety Report 5088827-7 (Version None)
Quarter: 2006Q3

REPORT INFORMATION
  Report Type: 
  Country: None (occurrence: None)
  Receive Date: 20060825
  Receipt Date: 20041025
  Transmission Date: 20061208
  Serious: Yes (Other)
  Sender: FDA-Public Use
  Company Number: US-NOVOPROD-240090

PATIENT
  Age: 56 Year
  Sex: Female
  Weight: 61 kg

DRUGS (5)
  1. AVONEX [Concomitant]
     Indication: ILL-DEFINED DISORDER
  2. PROZAC [Concomitant]
     Indication: ILL-DEFINED DISORDER
  3. GLUCOPHAGE [Concomitant]
     Indication: INSULIN-REQUIRING TYPE II DIABETES MELLITUS
     Route: 048
  4. THEOPHYLLINE [Concomitant]
     Indication: ILL-DEFINED DISORDER
     Dosage: UNK, UNK
  5. NOVOLIN 70/30 [Suspect]
     Indication: INSULIN-REQUIRING TYPE II DIABETES MELLITUS
     Route: 058
     Dates: start: 20030101

REACTIONS (3)
  - MEDICAL DEVICE COMPLICATION [None]
  - SCAR [None]
  - SURGERY [None]
